FAERS Safety Report 9055121 (Version 2)
Quarter: 2013Q4

REPORT INFORMATION
  Report Type: Report from Study
  Country: JP (occurrence: JP)
  Receive Date: 20130206
  Receipt Date: 20131017
  Transmission Date: 20140711
  Serious: Yes (Other)
  Sender: FDA-Public Use
  Company Number: PHHY2012JP110207

PATIENT
  Sex: Male
  Weight: 72 kg

DRUGS (7)
  1. AFINITOR [Suspect]
     Indication: PANCREATIC NEUROENDOCRINE TUMOUR
     Dosage: 5 MG, QD
     Route: 048
     Dates: start: 20120327, end: 20120522
  2. AFINITOR [Suspect]
     Dosage: 5 MG, QD
     Route: 048
     Dates: start: 20120724
  3. LASIX [Concomitant]
  4. DIOVAN [Concomitant]
  5. ADALAT CR [Concomitant]
  6. MAINTATE [Concomitant]
  7. ZYLORIC [Concomitant]

REACTIONS (7)
  - Tuberculosis [Unknown]
  - Renal disorder [Recovered/Resolved]
  - Blood creatinine increased [Recovered/Resolved]
  - Blood urea increased [Recovered/Resolved]
  - Haemoglobin decreased [Unknown]
  - C-reactive protein increased [Unknown]
  - Platelet count increased [Unknown]
